FAERS Safety Report 10151554 (Version 1)
Quarter: 2014Q2

REPORT INFORMATION
  Report Type: Spontaneous
  Country: AU (occurrence: AU)
  Receive Date: 20140505
  Receipt Date: 20140505
  Transmission Date: 20141212
  Serious: Yes (Other)
  Sender: FDA-Public Use
  Company Number: AU-AMGEN-AUSSP2014030686

PATIENT
  Sex: Female

DRUGS (1)
  1. PROLIA [Suspect]
     Indication: BONE DISORDER
     Dosage: UNK
     Route: 065
     Dates: start: 20140318

REACTIONS (8)
  - Depression [Unknown]
  - Tooth disorder [Unknown]
  - Gingival disorder [Unknown]
  - Feeling of body temperature change [Unknown]
  - Gait disturbance [Unknown]
  - Malaise [Unknown]
  - Fatigue [Unknown]
  - Bone pain [Unknown]
